FAERS Safety Report 6322121-9 (Version None)
Quarter: 2009Q3

REPORT INFORMATION
  Report Type: 
  Country: None (occurrence: None)
  Receive Date: 20090821
  Receipt Date: 20090821
  Transmission Date: 20100115
  Serious: Yes (Other)
  Sender: FDA-Public Use
  Company Number: None

PATIENT
  Sex: Male
  Weight: 65.5 kg

DRUGS (1)
  1. ZYRTEC [Suspect]
     Indication: MULTIPLE ALLERGIES
     Dosage: 10 MG DAILY ORAL
     Route: 048
     Dates: start: 20051210, end: 20060117

REACTIONS (3)
  - BINOCULAR EYE MOVEMENT DISORDER [None]
  - VISION BLURRED [None]
  - VISUAL IMPAIRMENT [None]
